FAERS Safety Report 4457406-4 (Version None)
Quarter: 2004Q3

REPORT INFORMATION
  Report Type: 
  Country: None (occurrence: None)
  Receive Date: 20040921
  Receipt Date: 20040910
  Transmission Date: 20050211
  Serious: Yes (Death, Disabling)
  Sender: FDA-Public Use
  Company Number: A0512187A

PATIENT
  Age: 61 Year
  Sex: Female
  Weight: 42.9103 kg

DRUGS (1)
  1. NAVELBINE [Suspect]
     Indication: BREAST CANCER METASTATIC
     Dosage: 30 MG/ M2/ INTRAVENO
     Route: 042
     Dates: start: 20040202, end: 20040506

REACTIONS (6)
  - APHASIA [None]
  - BRAIN NEOPLASM MALIGNANT [None]
  - DYSPHAGIA [None]
  - MARKEDLY REDUCED DIETARY INTAKE [None]
  - SPEECH DISORDER [None]
  - VOCAL CORD PARALYSIS [None]
